FAERS Safety Report 5469563-1 (Version None)
Quarter: 2007Q3

REPORT INFORMATION
  Report Type: 
  Country: None (occurrence: None)
  Receive Date: 20070925
  Receipt Date: 20070925
  Transmission Date: 20080115
  Serious: Yes (Hospitalization)
  Sender: FDA-Public Use
  Company Number: None

PATIENT
  Age: 34 Year
  Sex: Female
  Weight: 81.1939 kg

DRUGS (3)
  1. DEPO-PROVERA [Suspect]
     Indication: AMENORRHOEA
     Dosage: 150 MG EVERY 3 MONTHS SQ
     Route: 058
     Dates: start: 20070830, end: 20070923
  2. DEPO-PROVERA [Suspect]
     Indication: CONTRACEPTION
     Dosage: 150 MG EVERY 3 MONTHS SQ
     Route: 058
     Dates: start: 20070830, end: 20070923
  3. DEPO-PROVERA [Suspect]
     Indication: MENORRHAGIA
     Dosage: 150 MG EVERY 3 MONTHS SQ
     Route: 058
     Dates: start: 20070830, end: 20070923

REACTIONS (13)
  - ANXIETY [None]
  - BREAST TENDERNESS [None]
  - CHEST PAIN [None]
  - COLD SWEAT [None]
  - FEELING JITTERY [None]
  - LOSS OF CONSCIOUSNESS [None]
  - MUSCLE SPASMS [None]
  - NAUSEA [None]
  - PALPITATIONS [None]
  - TUNNEL VISION [None]
  - VERTIGO [None]
  - VISUAL DISTURBANCE [None]
  - VISUAL FIELD DEFECT [None]
